FAERS Safety Report 9848715 (Version 1)
Quarter: 2014Q1

REPORT INFORMATION
  Report Type: Spontaneous
  Country: US (occurrence: None)
  Receive Date: 20140124
  Receipt Date: 20140124
  Transmission Date: 20141002
  Serious: Yes (Other)
  Sender: FDA-Public Use
  Company Number: None

PATIENT
  Age: 27 Year
  Sex: Female
  Weight: 63.96 kg

DRUGS (1)
  1. DEPO PROVERA [Suspect]
     Indication: CONTRACEPTION
     Dosage: EVERY 12 WEEKS
     Route: 030
     Dates: start: 20140108

REACTIONS (5)
  - Blister [None]
  - Skin exfoliation [None]
  - Erythema [None]
  - Local swelling [None]
  - Pain in extremity [None]
